FAERS Safety Report 6116621-4 (Version None)
Quarter: 2009Q1

REPORT INFORMATION
  Report Type: 
  Country: None (occurrence: None)
  Receive Date: 20090314
  Receipt Date: 20090216
  Transmission Date: 20090719
  Serious: No
  Sender: FDA-Public Use
  Company Number: US-ABBOTT-08P-163-0493897-00

PATIENT
  Sex: Male
  Weight: 74.002 kg

DRUGS (10)
  1. HUMIRA [Suspect]
     Indication: CROHN'S DISEASE
     Dates: start: 20081026
  2. PENTASA [Concomitant]
     Indication: CROHN'S DISEASE
     Dosage: 500MG, 4 IN 1 DAYS
     Route: 048
  3. SULAR [Concomitant]
     Indication: HYPERTENSION
     Dosage: 17 MG, 2 IN 1 DAYS
     Route: 048
  4. BENICAR [Concomitant]
     Indication: HYPERTENSION
     Route: 048
  5. MAGNESIUM SULFATE [Concomitant]
     Indication: BLOOD MAGNESIUM DECREASED
     Route: 048
  6. CALCIUM [Concomitant]
     Indication: BLOOD CALCIUM DECREASED
     Route: 048
  7. CRESTOR [Concomitant]
     Indication: BLOOD CHOLESTEROL INCREASED
     Route: 048
  8. ATENOLOL [Concomitant]
     Indication: HYPERTENSION
     Route: 048
  9. POTASSIUM CHLORIDE [Concomitant]
     Indication: BLOOD POTASSIUM DECREASED
  10. MULTI-VITAMIN [Concomitant]
     Indication: DRUG USE FOR UNKNOWN INDICATION
     Route: 048

REACTIONS (16)
  - ASTHENIA [None]
  - BLOOD ALBUMIN DECREASED [None]
  - BLOOD CALCIUM DECREASED [None]
  - BLOOD CHOLESTEROL DECREASED [None]
  - BLOOD MAGNESIUM DECREASED [None]
  - BLOOD POTASSIUM DECREASED [None]
  - DIARRHOEA [None]
  - DRUG INEFFECTIVE [None]
  - DYSGEUSIA [None]
  - HIGH DENSITY LIPOPROTEIN DECREASED [None]
  - JOINT SWELLING [None]
  - NEOPLASM SKIN [None]
  - OEDEMA PERIPHERAL [None]
  - PROTEIN TOTAL DECREASED [None]
  - SWELLING [None]
  - WEIGHT DECREASED [None]
